FAERS Safety Report 6061311-X (Version None)
Quarter: 2009Q1

REPORT INFORMATION
  Report Type: 
  Country: None (occurrence: None)
  Receive Date: 20090202
  Receipt Date: 20090128
  Transmission Date: 20090719
  Serious: Yes (Other)
  Sender: FDA-Public Use
  Company Number: US-MERCK-0901USA00830

PATIENT
  Age: 9 Year
  Sex: Male

DRUGS (2)
  1. SINGULAIR [Suspect]
     Indication: RHINITIS ALLERGIC
     Route: 048
     Dates: start: 20040101, end: 20090107
  2. SINGULAIR [Suspect]
     Indication: ASTHMA
     Route: 048
     Dates: start: 20040101, end: 20090107

REACTIONS (3)
  - ASPARTATE AMINOTRANSFERASE INCREASED [None]
  - GASTROINTESTINAL DISORDER [None]
  - LIVER FUNCTION TEST ABNORMAL [None]
